FAERS Safety Report 17852560 (Version 1)
Quarter: 2020Q2

REPORT INFORMATION
  Report Type: Spontaneous
  Country: KR (occurrence: KR)
  Receive Date: 20200602
  Receipt Date: 20200602
  Transmission Date: 20200714
  Serious: Yes (Other)
  Sender: FDA-Public Use
  Company Number: KR-LEO PHARMA-329845

PATIENT
  Sex: Male

DRUGS (1)
  1. DAIVOBET [Suspect]
     Active Substance: BETAMETHASONE DIPROPIONATE\CALCIPOTRIENE
     Indication: PSORIASIS
     Dosage: QD (ONCE A DAY, AT NIGHT BEFORE BED)
     Route: 061

REACTIONS (2)
  - Osteonecrosis [Not Recovered/Not Resolved]
  - Drug ineffective [Unknown]
